FAERS Safety Report 5971401-5 (Version None)
Quarter: 2008Q4

REPORT INFORMATION
  Report Type: 
  Country: None (occurrence: None)
  Receive Date: 20081130
  Receipt Date: 20081121
  Transmission Date: 20090506
  Serious: Yes (Other)
  Sender: FDA-Public Use
  Company Number: US-PFIZER INC-2008081565

PATIENT
  Sex: Female
  Weight: 129.3 kg

DRUGS (5)
  1. LYRICA [Suspect]
     Indication: SCIATICA
     Dates: start: 20080725, end: 20080907
  2. LYRICA [Suspect]
     Indication: CARPAL TUNNEL SYNDROME
  3. LYRICA [Suspect]
     Indication: SPINAL COLUMN STENOSIS
  4. PRILOSEC [Concomitant]
  5. CLINORIL [Concomitant]

REACTIONS (5)
  - DEPRESSION [None]
  - DRY MOUTH [None]
  - FATIGUE [None]
  - MOOD SWINGS [None]
  - OEDEMA PERIPHERAL [None]
